FAERS Safety Report 4392686-5 (Version None)
Quarter: 2004Q3

REPORT INFORMATION
  Report Type: 
  Country: None (occurrence: None)
  Receive Date: 20040702
  Receipt Date: 20040625
  Transmission Date: 20050211
  Serious: Yes (Life-Threatening, Hospitalization)
  Sender: FDA-Public Use
  Company Number: UKP04000229

PATIENT
  Age: 85 Year
  Sex: Female
  Weight: 55 kg

DRUGS (7)
  1. ACTONEL [Suspect]
     Dosage: 35 MG, 1/WEEK, ORAL
     Route: 048
     Dates: start: 20030601, end: 20031101
  2. ACETYLSALICYLIC ACID SRT [Concomitant]
  3. METHOTREXATE [Concomitant]
  4. LANSOPRAZOLE [Concomitant]
  5. SIMVASTATIN [Concomitant]
  6. FOLIC ACID (FOLIC CID) [Concomitant]
  7. DRUG NOS [Concomitant]

REACTIONS (13)
  - APATHY [None]
  - ARTHRALGIA [None]
  - BONE DENSITY DECREASED [None]
  - CONSTIPATION [None]
  - DIARRHOEA [None]
  - DIZZINESS [None]
  - GASTROINTESTINAL DISORDER [None]
  - KERATOCONJUNCTIVITIS SICCA [None]
  - MUSCULOSKELETAL PAIN [None]
  - NOCTURIA [None]
  - OEDEMA [None]
  - UNEVALUABLE EVENT [None]
  - WEIGHT DECREASED [None]
